FAERS Safety Report 7939020-9 (Version None)
Quarter: 2011Q4

REPORT INFORMATION
  Report Type: 
  Country: None (occurrence: None)
  Receive Date: 20111124
  Receipt Date: 20111121
  Transmission Date: 20120403
  Serious: Yes (Hospitalization)
  Sender: FDA-Public Use
  Company Number: BE-PFIZER INC-2008086713

PATIENT
  Age: 71 Year
  Sex: Male

DRUGS (1)
  1. SUNITINIB MALATE [Suspect]
     Indication: METASTATIC RENAL CELL CARCINOMA
     Dosage: 25 MG, DAILY: 4WEEKS ON/WEEKS OFF
     Route: 048
     Dates: start: 20051130

REACTIONS (1)
  - PLEURAL EFFUSION [None]
